FAERS Safety Report 23581566 (Version 1)
Quarter: 2024Q1

REPORT INFORMATION
  Report Type: Spontaneous
  Country: US (occurrence: US)
  Receive Date: 20240229
  Receipt Date: 20240229
  Transmission Date: 20240409
  Serious: Yes (Life-Threatening)
  Sender: FDA-Public Use
  Company Number: US-MYLANLABS-2024M1017050

PATIENT
  Sex: Female
  Weight: 68.039 kg

DRUGS (4)
  1. EPINEPHRINE [Suspect]
     Active Substance: EPINEPHRINE
     Indication: Hypersensitivity
     Dosage: 0.03 MILLIGRAM
     Route: 065
  2. VITAMIN D [Concomitant]
     Active Substance: VITAMIN D NOS
     Indication: Migraine
     Dosage: UNK
     Route: 065
  3. VITAMIN C [Concomitant]
     Active Substance: ASCORBIC ACID
     Indication: Migraine
     Dosage: UNK
     Route: 065
  4. BOTOX [Concomitant]
     Active Substance: ONABOTULINUMTOXINA
     Indication: Migraine
     Dosage: UNK
     Route: 065

REACTIONS (1)
  - Drug ineffective [Unknown]
